FAERS Safety Report 11128951 (Version 2)
Quarter: 2016Q1

REPORT INFORMATION
  Report Type: Spontaneous
  Country: US (occurrence: US)
  Receive Date: 20150521
  Receipt Date: 20160315
  Transmission Date: 20160525
  Serious: Yes (Hospitalization, Disabling, Other)
  Sender: FDA-Public Use
  Company Number: US-009507513-1204USA00555

PATIENT
  Sex: Female

DRUGS (4)
  1. ACTONEL [Suspect]
     Active Substance: RISEDRONATE SODIUM
     Indication: OSTEOPENIA
     Dosage: 35 MG, QW
     Route: 048
     Dates: start: 200402, end: 200903
  2. ACTONEL [Suspect]
     Active Substance: RISEDRONATE SODIUM
     Indication: OSTEOPOROSIS
  3. BONIVA [Suspect]
     Active Substance: IBANDRONATE SODIUM
     Indication: OSTEOPOROSIS
     Dosage: 50 MG, QM
     Route: 048
     Dates: start: 200904, end: 201103
  4. FOSAMAX [Suspect]
     Active Substance: ALENDRONATE SODIUM
     Indication: OSTEOPENIA
     Dosage: 10 MG, QD
     Route: 048
     Dates: start: 199801, end: 200007

REACTIONS (34)
  - Low turnover osteopathy [Not Recovered/Not Resolved]
  - Osteoporosis [Not Recovered/Not Resolved]
  - Spinal fracture [Unknown]
  - Blood cholesterol increased [Unknown]
  - Arthritis [Unknown]
  - Metastases to spine [Unknown]
  - Asthma [Unknown]
  - Intervertebral disc protrusion [Unknown]
  - Bone disorder [Not Recovered/Not Resolved]
  - Osteoporosis [Unknown]
  - Lymphoma [Unknown]
  - Rib fracture [Unknown]
  - Thoracic vertebral fracture [Unknown]
  - Myalgia [Unknown]
  - Drug ineffective [Unknown]
  - Spinal column stenosis [Unknown]
  - Lumbar spinal stenosis [Unknown]
  - Hip fracture [Recovered/Resolved]
  - Intramedullary rod insertion [Recovered/Resolved]
  - Stress fracture [Not Recovered/Not Resolved]
  - Spinal compression fracture [Unknown]
  - Facet joint syndrome [Unknown]
  - Treatment failure [Unknown]
  - Hypertension [Unknown]
  - Intervertebral disc degeneration [Unknown]
  - Chronic obstructive pulmonary disease [Not Recovered/Not Resolved]
  - Haemorrhoids [Unknown]
  - Surgery [Unknown]
  - Rib fracture [Unknown]
  - Spinal fracture [Unknown]
  - Lymphoproliferative disorder [Unknown]
  - Back pain [Unknown]
  - Kyphosis [Unknown]
  - Gastrooesophageal reflux disease [Unknown]

NARRATIVE: CASE EVENT DATE: 2001
